FAERS Safety Report 9633028 (Version 2)
Quarter: 2014Q1

REPORT INFORMATION
  Report Type: Spontaneous
  Country: NO (occurrence: NO)
  Receive Date: 20131018
  Receipt Date: 20140211
  Transmission Date: 20141002
  Serious: Yes (Hospitalization)
  Sender: FDA-Public Use
  Company Number: NO-ABBVIE-13P-122-1157834-00

PATIENT
  Sex: Male

DRUGS (3)
  1. HUMIRA [Suspect]
     Indication: CROHN^S DISEASE
     Dosage: TREATED W/HUMIRA FOR HALF A YEAR
     Dates: start: 201112, end: 201203
  2. HUMIRA [Suspect]
     Indication: CROHN^S DISEASE
  3. REMICADE [Concomitant]
     Indication: CROHN^S DISEASE
     Dates: end: 201211

REACTIONS (6)
  - Post viral fatigue syndrome [Unknown]
  - Muscular weakness [Unknown]
  - Headache [Recovered/Resolved]
  - Abdominal pain upper [Recovered/Resolved]
  - Muscle spasms [Recovered/Resolved]
  - Emotional distress [Recovered/Resolved]
